FAERS Safety Report 8791802 (Version 1)
Quarter: 2012Q4

REPORT INFORMATION
  Report Type: 
  Country: US (occurrence: US)
  Receive Date: 20120918
  Receipt Date: 20120918
  Transmission Date: 20130627
  Serious: Yes (Hospitalization, Other)
  Sender: FDA-Public Use
  Company Number: US-009507513-2010SP029106

PATIENT

DRUGS (2)
  1. NUVARING [Suspect]
     Indication: MENORRHAGIA
     Dosage: continuously
     Route: 067
     Dates: start: 20060309, end: 200805
  2. NUVARING [Suspect]
     Indication: PELVIC PAIN

REACTIONS (6)
  - Pulmonary embolism [Recovered/Resolved]
  - Cholecystectomy [Unknown]
  - Incorrect drug administration duration [Unknown]
  - Migraine [Unknown]
  - Vitamin D deficiency [Unknown]
  - Off label use [Recovered/Resolved]
